FAERS Safety Report 6339513-4 (Version None)
Quarter: 2009Q3

REPORT INFORMATION
  Report Type: 
  Country: None (occurrence: None)
  Receive Date: 20090827
  Receipt Date: 20090630
  Transmission Date: 20100115
  Serious: No
  Sender: FDA-Public Use
  Company Number: 001207

PATIENT
  Age: 30 Year
  Sex: Male

DRUGS (2)
  1. LACOSAMIDE [Suspect]
     Indication: CONVULSION
     Dosage: 50 MG BID ORAL
     Route: 048
  2. ZOLOFT [Concomitant]

REACTIONS (1)
  - RASH GENERALISED [None]
